FAERS Safety Report 25878579 (Version 1)
Quarter: 2025Q4

REPORT INFORMATION
  Report Type: Spontaneous
  Country: BR (occurrence: BR)
  Receive Date: 20251003
  Receipt Date: 20251003
  Transmission Date: 20260118
  Serious: Yes (Other)
  Sender: TORRENT PHARMA INC.
  Company Number: BR-TORRENT-00006513

PATIENT
  Age: 12 Year
  Sex: Male

DRUGS (8)
  1. ARIPIPRAZOLE [Suspect]
     Active Substance: ARIPIPRAZOLE
     Indication: Product used for unknown indication
     Dosage: UNKNOWN
     Route: 048
  2. DIAZEPAM [Concomitant]
     Active Substance: DIAZEPAM
     Indication: Product used for unknown indication
     Dosage: UNKNOWN
     Route: 065
  3. ATOMOXETINE [Concomitant]
     Active Substance: ATOMOXETINE
     Indication: Product used for unknown indication
     Dosage: UNKNOWN
     Route: 065
  4. IMIPRAMINE [Concomitant]
     Active Substance: IMIPRAMINE
     Indication: Product used for unknown indication
     Dosage: UNKNOWN
     Route: 065
  5. PERICIAZINE [Concomitant]
     Active Substance: PERICIAZINE
     Indication: Product used for unknown indication
     Dosage: UNKNOWN
     Route: 065
  6. OLANZAPINE [Concomitant]
     Active Substance: OLANZAPINE
     Indication: Product used for unknown indication
     Dosage: UNKNOWN
     Route: 065
  7. Purodiol [Concomitant]
     Indication: Product used for unknown indication
     Dosage: 1 ML 12/12H
     Route: 065
  8. RISPERIDONE [Concomitant]
     Active Substance: RISPERIDONE
     Indication: Product used for unknown indication
     Dosage: UNKNOWN
     Route: 065

REACTIONS (12)
  - Aggression [Recovering/Resolving]
  - Psychomotor hyperactivity [Unknown]
  - Irritability [Recovering/Resolving]
  - Self-destructive behaviour [Recovering/Resolving]
  - Emotional disorder [Unknown]
  - Vomiting [Unknown]
  - Somnolence [Unknown]
  - Weight increased [Unknown]
  - School refusal [Recovering/Resolving]
  - Agitation [Recovering/Resolving]
  - Drug ineffective for unapproved indication [Unknown]
  - Off label use [Unknown]
